FAERS Safety Report 14851408 (Version 3)
Quarter: 2018Q3

REPORT INFORMATION
  Report Type: Spontaneous
  Country: US (occurrence: US)
  Receive Date: 20180507
  Receipt Date: 20180815
  Transmission Date: 20181010
  Serious: Yes (Death, Other)
  Sender: FDA-Public Use
  Company Number: US-ASTELLAS-2018US017823

PATIENT
  Sex: Male

DRUGS (1)
  1. XTANDI [Suspect]
     Active Substance: ENZALUTAMIDE
     Indication: PROSTATE CANCER
     Route: 048
     Dates: start: 20180307

REACTIONS (8)
  - Penile pain [Unknown]
  - Depression [Unknown]
  - Restless legs syndrome [Not Recovered/Not Resolved]
  - Death [Fatal]
  - Rhinorrhoea [Unknown]
  - Insomnia [Recovering/Resolving]
  - Urinary retention [Unknown]
  - Cough [Unknown]
